FAERS Safety Report 9372291 (Version 1)
Quarter: 2013Q2

REPORT INFORMATION
  Report Type: Report from Study
  Country: NL (occurrence: NL)
  Receive Date: 20130627
  Receipt Date: 20130627
  Transmission Date: 20140414
  Serious: Yes (Hospitalization)
  Sender: FDA-Public Use
  Company Number: PHHY2013NL065908

PATIENT
  Sex: Female

DRUGS (16)
  1. ZOMETA [Suspect]
     Indication: BREAST CANCER METASTATIC
     Dosage: 4 MG /100ML, ONCE EVERY 12 WEEKS
     Route: 042
  2. ZOMETA [Suspect]
     Dosage: 4 MG /100ML, ONCE EVERY 12 WEEKS
     Route: 042
     Dates: start: 20090929
  3. ZOMETA [Suspect]
     Dosage: 4 MG /100ML, ONCE EVERY 12 WEEKS
     Route: 042
     Dates: start: 20130404
  4. ZOMETA [Suspect]
     Dosage: 4 MG /100ML, ONCE EVERY 12 WEEKS
     Route: 042
     Dates: start: 20130625
  5. METOPROLOL SUCCINATE [Concomitant]
     Dosage: 100 MG, 1DD
  6. ISOSORBIDE MONONITRATE [Concomitant]
     Dosage: 60 MG, 1 DD
  7. ACENOCOUMAROL [Concomitant]
     Dosage: UNK UKN, UNK
  8. LUMIGAN [Concomitant]
     Dosage: 0.1 MG/ML
  9. EXEMESTAN [Concomitant]
     Dosage: 25 MG, UNK
  10. CALCI CHEW D3 [Concomitant]
     Dosage: 500 MG/400 IU
  11. PANTOPRAZOLE [Concomitant]
     Dosage: 40 MG, UNK
  12. MOVICOLON [Concomitant]
     Dosage: UNK UKN, UNK
  13. THYRAX [Concomitant]
     Dosage: UNK UKN, UNK
  14. SYMBICORT [Concomitant]
     Dosage: UNK UKN, UNK
  15. FUROSEMIDE [Concomitant]
     Dosage: 40 MG, UNK
  16. ATORVASTATIN [Concomitant]
     Dosage: 40 MG, UNK

REACTIONS (2)
  - Pulmonary embolism [Recovering/Resolving]
  - Dyspnoea [Recovering/Resolving]
